FAERS Safety Report 11398653 (Version 3)
Quarter: 2017Q3

REPORT INFORMATION
  Report Type: Spontaneous
  Country: JP (occurrence: JP)
  Receive Date: 20150820
  Receipt Date: 20170727
  Transmission Date: 20171127
  Serious: Yes (Other)
  Sender: FDA-Public Use
  Company Number: PHJP2015JP014110

PATIENT
  Age: 74 Year
  Sex: Female

DRUGS (4)
  1. YOKUKANSAN [Concomitant]
     Active Substance: HERBALS
     Indication: DECREASED APPETITE
     Route: 065
  2. YOKUKANSAN [Concomitant]
     Active Substance: HERBALS
     Indication: ASTHENIA
  3. ZOMETA [Suspect]
     Active Substance: ZOLEDRONIC ACID
     Indication: METASTASES TO BONE
     Dosage: UNK
     Route: 041
     Dates: start: 201204
  4. YOKUKANSAN [Concomitant]
     Active Substance: HERBALS
     Indication: POOR QUALITY SLEEP

REACTIONS (9)
  - Osteonecrosis of jaw [Unknown]
  - Exposed bone in jaw [Unknown]
  - Impaired healing [Unknown]
  - Purulent discharge [Unknown]
  - Osteonecrosis [Unknown]
  - Hypophagia [Unknown]
  - Bone pain [Unknown]
  - Bone swelling [Unknown]
  - Gingivitis [Unknown]

NARRATIVE: CASE EVENT DATE: 201309
